FAERS Safety Report 5841206-4 (Version None)
Quarter: 2008Q3

REPORT INFORMATION
  Report Type: 
  Country: None (occurrence: None)
  Receive Date: 20080812
  Receipt Date: 20080805
  Transmission Date: 20090109
  Serious: Yes (Hospitalization)
  Sender: FDA-Public Use
  Company Number: US-JNJFOC-20080801474

PATIENT
  Sex: Male
  Weight: 56.7 kg

DRUGS (6)
  1. LEVAQUIN [Suspect]
     Indication: INFECTION
     Route: 048
  2. LEVAQUIN [Suspect]
     Indication: FISTULA
     Dosage: 500MG TABLETS ORDERED FOR 30 DAYS.  STOP DATE MAY-2008
     Route: 048
  3. METFORMIN HCL [Concomitant]
     Indication: DIABETES MELLITUS
  4. STEROIDS [Concomitant]
     Indication: FISTULA
  5. GLYBERIDE [Concomitant]
     Indication: DIABETES MELLITUS
  6. ASACOL [Concomitant]
     Indication: CROHN'S DISEASE

REACTIONS (2)
  - PNEUMONIA ASPIRATION [None]
  - VOMITING [None]
